FAERS Safety Report 7571405-5 (Version None)
Quarter: 2011Q2

REPORT INFORMATION
  Report Type: 
  Country: None (occurrence: None)
  Receive Date: 20110624
  Receipt Date: 20110615
  Transmission Date: 20111010
  Serious: Yes (Other)
  Sender: FDA-Public Use
  Company Number: PHHY2011JP53968

PATIENT
  Age: 3 Year
  Sex: Male

DRUGS (2)
  1. PREDNISOLONE [Suspect]
     Indication: ACUTE LYMPHOCYTIC LEUKAEMIA
     Dosage: 60 MG/M2/DAY FOR 4 WEEKS IN INDUCTION THERAPY
  2. DEXAMETHASONE [Suspect]
     Indication: ACUTE LYMPHOCYTIC LEUKAEMIA
     Dosage: 6 MG/M2/DAY FOR 2 WEEKS IN LATE INTENSIFICATION THERAPY

REACTIONS (3)
  - VISUAL IMPAIRMENT [None]
  - GLAUCOMA [None]
  - INTRAOCULAR PRESSURE INCREASED [None]
